FAERS Safety Report 6462343-X (Version None)
Quarter: 2009Q4

REPORT INFORMATION
  Report Type: 
  Country: None (occurrence: None)
  Receive Date: 20091130
  Receipt Date: 20091029
  Transmission Date: 20100525
  Serious: No
  Sender: FDA-Public Use
  Company Number: US-BAYER-200938142NA

PATIENT
  Age: 38 Year
  Sex: Female

DRUGS (1)
  1. MIRENA [Suspect]
     Indication: CONTRACEPTION
     Dosage: CONTINUOUS DELIVERY
     Route: 015
     Dates: start: 20080701

REACTIONS (6)
  - ABDOMINAL DISTENSION [None]
  - BACTERIAL INFECTION [None]
  - DEPRESSED MOOD [None]
  - FUNGAL INFECTION [None]
  - VAGINAL HAEMORRHAGE [None]
  - WEIGHT INCREASED [None]
